FAERS Safety Report 9934452 (Version 6)
Quarter: 2014Q4

REPORT INFORMATION
  Report Type: Spontaneous
  Country: AU (occurrence: None)
  Receive Date: 20140226
  Receipt Date: 20141209
  Transmission Date: 20150529
  Serious: Yes (Death, Hospitalization, Other)
  Sender: FDA-Public Use
  Company Number: 2074024

PATIENT
  Age: 62 Year
  Sex: Male

DRUGS (17)
  1. AMLODIPINE  W/VALSARTAN [Concomitant]
     Active Substance: AMLODIPINE\VALSARTAN
  2. GEMCITABINE HYDROCHLORIDE. [Suspect]
     Active Substance: GEMCITABINE HYDROCHLORIDE
     Indication: SARCOMA METASTATIC
     Route: 041
     Dates: start: 20131108, end: 20131108
  3. DOCETAXEL. [Suspect]
     Active Substance: DOCETAXEL
     Indication: SARCOMA METASTATIC
     Route: 041
     Dates: start: 20131122, end: 20131122
  4. METFORMIN HYDROCHLORIDE W/VILDAGLIPTIN [Concomitant]
  5. DILTIAZEM [Concomitant]
     Active Substance: DILTIAZEM
  6. GLIMEPIRIDE. [Concomitant]
     Active Substance: GLIMEPIRIDE
  7. AMITRIPTYLINE HYDROCHLORIDE. [Concomitant]
     Active Substance: AMITRIPTYLINE HYDROCHLORIDE
  8. HYDROMORPHONE HYDROCHLORIDE. [Concomitant]
     Active Substance: HYDROMORPHONE HYDROCHLORIDE
  9. ESCITALOPRAM OXALATE. [Concomitant]
     Active Substance: ESCITALOPRAM OXALATE
  10. ANALGESICS [Concomitant]
     Active Substance: UNSPECIFIED INGREDIENT
  11. LANSOPRAZOLE. [Concomitant]
     Active Substance: LANSOPRAZOLE
  12. OXYCODONE HYDROCHLORIDE. [Concomitant]
     Active Substance: OXYCODONE HYDROCHLORIDE
  13. ATORVASTATIN CALCIUM. [Concomitant]
     Active Substance: ATORVASTATIN CALCIUM
  14. BUPRENORPHINE [Concomitant]
     Active Substance: BUPRENORPHINE
  15. INVESTIGATIONAL DRUG [Suspect]
     Active Substance: INVESTIGATIONAL PRODUCT
     Indication: SARCOMA METASTATIC
     Route: 041
     Dates: start: 20131108, end: 20140117
  16. INSULIN GLARGINE [Concomitant]
     Active Substance: INSULIN GLARGINE
  17. PREGABALIN. [Concomitant]
     Active Substance: PREGABALIN

REACTIONS (26)
  - Aspartate aminotransferase increased [None]
  - Pyrexia [None]
  - Acute kidney injury [None]
  - Multi-organ failure [None]
  - Lethargy [None]
  - Sarcoma metastatic [None]
  - Bacillus test positive [None]
  - Hepatic failure [None]
  - General physical health deterioration [None]
  - Toxicity to various agents [None]
  - Haemoglobin decreased [None]
  - Alanine aminotransferase increased [None]
  - Blood alkaline phosphatase increased [None]
  - Blood potassium increased [None]
  - Hepatotoxicity [None]
  - Cough [None]
  - Gamma-glutamyltransferase increased [None]
  - Renal cyst [None]
  - Pancreatic carcinoma metastatic [None]
  - Escherichia sepsis [None]
  - Malignant neoplasm progression [None]
  - Cholelithiasis [None]
  - Hypotension [None]
  - Blood lactate dehydrogenase increased [None]
  - Dyspnoea [None]
  - Dehydration [None]

NARRATIVE: CASE EVENT DATE: 20131114
